FAERS Safety Report 25426309 (Version 1)
Quarter: 2025Q2

REPORT INFORMATION
  Report Type: Spontaneous
  Country: RO (occurrence: RO)
  Receive Date: 20250612
  Receipt Date: 20250612
  Transmission Date: 20250717
  Serious: Yes (Hospitalization, Other)
  Sender: SANDOZ
  Company Number: RO-VITEMA-2025-012

PATIENT
  Age: 38 Year

DRUGS (1)
  1. METHOTREXATE [Suspect]
     Active Substance: METHOTREXATE
     Indication: Juvenile idiopathic arthritis
     Route: 065

REACTIONS (8)
  - Cranial nerve palsies multiple [Recovered/Resolved]
  - Facial paralysis [Recovered/Resolved]
  - Hyperaesthesia [Recovered/Resolved]
  - Diplopia [Recovered/Resolved]
  - Headache [Recovered/Resolved]
  - Speech disorder [Recovered/Resolved]
  - Meningitis aseptic [Recovered/Resolved]
  - Paraesthesia [Recovered/Resolved]
